FAERS Safety Report 10046087 (Version 1)
Quarter: 2014Q1

REPORT INFORMATION
  Report Type: Spontaneous
  Country: DE (occurrence: DE)
  Receive Date: 20140331
  Receipt Date: 20140331
  Transmission Date: 20141002
  Serious: Yes (Other)
  Sender: FDA-Public Use
  Company Number: DE-BIOGENIDEC-2013BI104175

PATIENT
  Age: 24 Year
  Sex: Female
  Weight: 55 kg

DRUGS (1)
  1. AVONEX [Suspect]
     Indication: MULTIPLE SCLEROSIS
     Route: 030
     Dates: start: 200605, end: 201308

REACTIONS (1)
  - Umbilical cord around neck [Recovered/Resolved]
